FAERS Safety Report 13205624 (Version 1)
Quarter: 2017Q1

REPORT INFORMATION
  Report Type: Spontaneous
  Country: BR (occurrence: BR)
  Receive Date: 20170209
  Receipt Date: 20170209
  Transmission Date: 20170428
  Serious: Yes (Other)
  Sender: FDA-Public Use
  Company Number: BR-PFIZER INC-2017039593

PATIENT
  Age: 6 Year
  Sex: Female

DRUGS (1)
  1. ADVIL [Suspect]
     Active Substance: IBUPROFEN
     Dosage: 400 MG, UNK
     Route: 047
     Dates: start: 20170126, end: 20170126

REACTIONS (3)
  - Accidental exposure to product by child [Recovered/Resolved]
  - Chemical eye injury [Recovered/Resolved]
  - Photophobia [Recovered/Resolved]

NARRATIVE: CASE EVENT DATE: 20170126
